FAERS Safety Report 14356142 (Version 1)
Quarter: 2018Q1

REPORT INFORMATION
  Report Type: Spontaneous
  Country: US (occurrence: US)
  Receive Date: 20180104
  Receipt Date: 20180104
  Transmission Date: 20180509
  Serious: No
  Sender: FDA-Public Use
  Company Number: None

PATIENT
  Age: 57 Year
  Sex: Female

DRUGS (1)
  1. COPAXONE [Suspect]
     Active Substance: GLATIRAMER ACETATE
     Indication: MULTIPLE SCLEROSIS
     Route: 058
     Dates: start: 20160325

REACTIONS (6)
  - Hypoacusis [None]
  - Speech disorder [None]
  - Multiple sclerosis [None]
  - Visual impairment [None]
  - Memory impairment [None]
  - Hyperhidrosis [None]

NARRATIVE: CASE EVENT DATE: 20160425
